FAERS Safety Report 11054883 (Version 1)
Quarter: 2015Q2

REPORT INFORMATION
  Report Type: Spontaneous
  Country: AU (occurrence: AU)
  Receive Date: 20150422
  Receipt Date: 20150422
  Transmission Date: 20150821
  Serious: Yes (Other)
  Sender: FDA-Public Use
  Company Number: AU-PFIZER INC-2015130075

PATIENT
  Sex: Female

DRUGS (6)
  1. CECLOR [Suspect]
     Active Substance: CEFACLOR
  2. DORYX [Suspect]
     Active Substance: DOXYCYCLINE HYCLATE
  3. BISOLVON [Suspect]
     Active Substance: BROMHEXINE HYDROCHLORIDE
  4. DOXYLINE [Suspect]
     Active Substance: DOXYCYCLINE HYDROCHLORIDE
  5. DEPTRAN [Suspect]
     Active Substance: DOXEPIN HYDROCHLORIDE
  6. RULIDE [Suspect]
     Active Substance: ROXITHROMYCIN

REACTIONS (2)
  - Sinus disorder [Unknown]
  - Deafness [Unknown]
